FAERS Safety Report 8446320-5 (Version None)
Quarter: 2012Q2

REPORT INFORMATION
  Report Type: 
  Country: None (occurrence: None)
  Receive Date: 20120618
  Receipt Date: 20120614
  Transmission Date: 20120825
  Serious: No
  Sender: FDA-Public Use
  Company Number: CHPA2012US011157

PATIENT
  Age: 59 Year
  Sex: Male

DRUGS (3)
  1. PLAVIX [Concomitant]
     Dosage: UNK, UNK
     Route: 048
  2. PREVACID 24 HR [Suspect]
     Indication: DYSPEPSIA
     Dosage: 30 MG, QD
     Route: 048
     Dates: start: 20120605
  3. ASPIRIN [Concomitant]
     Dosage: UNK, UNK
     Route: 048

REACTIONS (4)
  - DYSPEPSIA [None]
  - FEELING ABNORMAL [None]
  - OVERDOSE [None]
  - OFF LABEL USE [None]
